FAERS Safety Report 5322892-4 (Version None)
Quarter: 2007Q2

REPORT INFORMATION
  Report Type: 
  Country: None (occurrence: None)
  Receive Date: 20070511
  Receipt Date: 20070501
  Transmission Date: 20071010
  Serious: Yes (Death)
  Sender: FDA-Public Use
  Company Number: JP-GENENTECH-240826

PATIENT
  Age: 3 Year
  Sex: Male

DRUGS (1)
  1. NUTROPIN [Suspect]
     Indication: PRADER-WILLI SYNDROME

REACTIONS (1)
  - SUDDEN DEATH [None]
